FAERS Safety Report 21896957 (Version 1)
Quarter: 2023Q1

REPORT INFORMATION
  Report Type: Other
  Country: US (occurrence: None)
  Receive Date: 20230123
  Receipt Date: 20230123
  Transmission Date: 20230418
  Serious: Yes (Other)
  Sender: FDA-Public Use
  Company Number: US-ROCHE-3267849

PATIENT
  Age: 70 Year
  Sex: Male

DRUGS (1)
  1. GAVRETO [Suspect]
     Active Substance: PRALSETINIB
     Indication: Product used for unknown indication
     Dosage: TAKE 4 CAPSULES BY MOUTH 400MG EVERY DAY ON AN EMPTY STOMACH, AT LEAST 1 HOUR BEFORE OR 2 HOURS
     Route: 048

REACTIONS (2)
  - Cerebrovascular accident [Unknown]
  - Thrombosis [Unknown]
